FAERS Safety Report 15756525 (Version 2)
Quarter: 2019Q1

REPORT INFORMATION
  Report Type: Spontaneous
  Country: US (occurrence: US)
  Receive Date: 20181224
  Receipt Date: 20190228
  Transmission Date: 20190417
  Serious: Yes (Other)
  Sender: FDA-Public Use
  Company Number: US-IPSEN BIOPHARMACEUTICALS, INC.-2018-19689

PATIENT
  Age: 66 Year
  Sex: Female
  Weight: 176 kg

DRUGS (6)
  1. VIVELLE [Concomitant]
     Active Substance: ESTRADIOL
  2. DYSPORT [Suspect]
     Active Substance: ABOBOTULINUMTOXINA
     Indication: SKIN WRINKLING
     Dosage: 60 UNITS IN CROW^S FEET
     Route: 058
     Dates: start: 20181119
  3. ASPIRIN. [Concomitant]
     Active Substance: ASPIRIN
  4. MULTIVITAMIN [Concomitant]
     Active Substance: VITAMINS
  5. RESTYLANE [Concomitant]
     Active Substance: HYALURONIC ACID
     Dates: start: 2016
  6. DYSPORT [Suspect]
     Active Substance: ABOBOTULINUMTOXINA
     Indication: OFF LABEL USE

REACTIONS (5)
  - Conjunctival haemorrhage [Recovered/Resolved]
  - Dry eye [Unknown]
  - Off label use [Unknown]
  - Blood pressure increased [Unknown]
  - Upper respiratory tract infection [Recovered/Resolved]

NARRATIVE: CASE EVENT DATE: 20181121
